FAERS Safety Report 23255516 (Version 2)
Quarter: 2023Q4

REPORT INFORMATION
  Report Type: Report from Study
  Country: EG (occurrence: EG)
  Receive Date: 20231203
  Receipt Date: 20231215
  Transmission Date: 20240109
  Serious: Yes (Other)
  Sender: FDA-Public Use
  Company Number: EG-002147023-NVSC2023EG253617

PATIENT
  Age: 37 Year
  Sex: Female

DRUGS (12)
  1. CYCLOSPORINE [Suspect]
     Active Substance: CYCLOSPORINE
     Indication: Urticaria
     Dosage: 2 DOSAGE FORM, BID
     Route: 048
     Dates: start: 202211
  2. XOLAIR [Suspect]
     Active Substance: OMALIZUMAB
     Indication: Urticaria
     Dosage: 1 DOSAGE FORM, EVERY 15 DAYS
     Route: 058
     Dates: start: 20231126
  3. CLARITIN [Concomitant]
     Active Substance: LORATADINE
     Indication: Urticaria
     Dosage: 1 DOSAGE FORM, BID
     Route: 048
     Dates: start: 202211
  4. ALLERFEN [Concomitant]
     Indication: Urticaria
     Dosage: 1 DOSAGE FORM, BID
     Route: 048
     Dates: start: 20231122
  5. ATARAX [Concomitant]
     Active Substance: HYDROXYZINE HYDROCHLORIDE
     Indication: Urticaria
     Dosage: 1 DOSAGE FORM, QD
     Route: 048
     Dates: start: 20231122
  6. XILONE FORTE [Concomitant]
     Indication: Urticaria
     Dosage: 1 DOSAGE FORM, QD (5 CM)
     Route: 065
     Dates: start: 202309
  7. HOSTACORTIN [Concomitant]
     Indication: Urticaria
     Dosage: 1 DOSAGE FORM, Q8H (OVER 3 DAYS)
     Route: 065
  8. DEXA [Concomitant]
     Indication: Urticaria
     Dosage: 1 DOSAGE FORM, Q8H (OVER 3 DAYS)
     Route: 065
  9. ZADETIN [Concomitant]
     Indication: Urticaria
     Dosage: 1 DOSAGE FORM, QD (AT NIGHT)
     Route: 048
     Dates: start: 20231122
  10. VIDROP [Concomitant]
     Indication: Vitamin D deficiency
     Dosage: 2 BOTTLES, QW (STOPPED FOR ONE YEAR THEN SHE TOOK IT AGAIN)
     Route: 048
  11. OMEGA 3 [Concomitant]
     Active Substance: CAPSAICIN
     Indication: Ill-defined disorder
     Dosage: 1 DOSAGE FORM, QD
     Route: 065
  12. VITAMIN B12 [Concomitant]
     Active Substance: CYANOCOBALAMIN
     Indication: Vitamin B12 deficiency
     Dosage: 1 DOSAGE FORM, QD
     Route: 065

REACTIONS (12)
  - Immunodeficiency [Not Recovered/Not Resolved]
  - Fatigue [Not Recovered/Not Resolved]
  - Urticaria [Recovering/Resolving]
  - Rash [Recovering/Resolving]
  - Pruritus [Recovering/Resolving]
  - Swelling face [Recovering/Resolving]
  - Lip swelling [Recovering/Resolving]
  - Peripheral swelling [Recovering/Resolving]
  - Drug ineffective [Not Recovered/Not Resolved]
  - Generalised oedema [Unknown]
  - Urine electrolytes increased [Unknown]
  - Off label use [Unknown]

NARRATIVE: CASE EVENT DATE: 20231126
